FAERS Safety Report 15836595 (Version 1)
Quarter: 2019Q1

REPORT INFORMATION
  Report Type: Spontaneous
  Country: US (occurrence: US)
  Receive Date: 20190117
  Receipt Date: 20190117
  Transmission Date: 20190417
  Serious: Yes (Other)
  Sender: FDA-Public Use
  Company Number: US-009507513-1901USA003162

PATIENT
  Age: 16 Year
  Sex: Female
  Weight: 93.42 kg

DRUGS (2)
  1. NEXPLANON [Suspect]
     Active Substance: ETONOGESTREL
     Dosage: 1 IMPLANT
     Route: 059
     Dates: start: 20190104
  2. NEXPLANON [Suspect]
     Active Substance: ETONOGESTREL
     Dosage: 1 IMPLANT
     Route: 059
     Dates: start: 20180802, end: 20190104

REACTIONS (2)
  - Device dislocation [Recovered/Resolved]
  - Implant site pruritus [Unknown]

NARRATIVE: CASE EVENT DATE: 2018
